FAERS Safety Report 12567154 (Version 1)
Quarter: 2016Q3

REPORT INFORMATION
  Report Type: Spontaneous
  Country: SE (occurrence: SE)
  Receive Date: 20160718
  Receipt Date: 20160718
  Transmission Date: 20161109
  Serious: Yes (Hospitalization)
  Sender: FDA-Public Use
  Company Number: SE-TEVA-675682ISR

PATIENT
  Age: 62 Year
  Sex: Male

DRUGS (2)
  1. DICLOFENAC [Suspect]
     Active Substance: DICLOFENAC
     Route: 048
  2. WARAN [Suspect]
     Active Substance: WARFARIN SODIUM
     Route: 048

REACTIONS (2)
  - Haematoma [Not Recovered/Not Resolved]
  - Renal failure [Not Recovered/Not Resolved]
